FAERS Safety Report 6574723-2 (Version None)
Quarter: 2010Q1

REPORT INFORMATION
  Report Type: 
  Country: None (occurrence: None)
  Receive Date: 20100209
  Receipt Date: 20100129
  Transmission Date: 20100710
  Serious: Yes (Hospitalization, Other)
  Sender: FDA-Public Use
  Company Number: PHHY2010GB04649

PATIENT
  Sex: Male

DRUGS (2)
  1. CLOZARIL [Suspect]
     Indication: SCHIZOPHRENIA
     Dosage: UNK
     Dates: start: 20080129, end: 20100122
  2. AMISULPRIDE [Concomitant]

REACTIONS (8)
  - ANTIPSYCHOTIC DRUG LEVEL INCREASED [None]
  - ATAXIA [None]
  - CONFUSIONAL STATE [None]
  - MENTAL DISORDER [None]
  - MENTAL STATUS CHANGES [None]
  - SALIVARY HYPERSECRETION [None]
  - SINUS TACHYCARDIA [None]
  - SOMNOLENCE [None]
